FAERS Safety Report 21859314 (Version 5)
Quarter: 2024Q1

REPORT INFORMATION
  Report Type: Spontaneous
  Country: US (occurrence: US)
  Receive Date: 20230113
  Receipt Date: 20240123
  Transmission Date: 20240410
  Serious: Yes (Other)
  Sender: FDA-Public Use
  Company Number: US-PFIZER INC-PV202300004933

PATIENT
  Age: 1 Year
  Sex: Male

DRUGS (2)
  1. GENOTROPIN [Suspect]
     Active Substance: SOMATROPIN
     Dosage: 0.5 MG
  2. GENOTROPIN [Suspect]
     Active Substance: SOMATROPIN
     Dosage: 0.5MGS 7 DAYS PER WEEK

REACTIONS (4)
  - Renal transplant [Unknown]
  - Device leakage [Unknown]
  - Device issue [Unknown]
  - Wrong technique in device usage process [Unknown]
